FAERS Safety Report 5126032-6 (Version None)
Quarter: 2006Q4

REPORT INFORMATION
  Report Type: 
  Country: None (occurrence: None)
  Receive Date: 20061012
  Receipt Date: 20060118
  Transmission Date: 20070319
  Serious: Yes (Death)
  Sender: FDA-Public Use
  Company Number: US-SANOFI-SYNTHELABO-A03200600396

PATIENT
  Age: 93 Year
  Sex: Female

DRUGS (3)
  1. PLAVIX [Suspect]
     Indication: CEREBROVASCULAR ACCIDENT
     Route: 048
     Dates: start: 20051001, end: 20050101
  2. PLAVIX [Suspect]
     Route: 048
     Dates: start: 20060101
  3. COUMADIN [Concomitant]
     Dosage: UNK
     Route: 048

REACTIONS (14)
  - ABDOMINAL PAIN [None]
  - APNOEA [None]
  - ASTHENIA [None]
  - ATRIAL FIBRILLATION [None]
  - DEPRESSED LEVEL OF CONSCIOUSNESS [None]
  - DRUG INEFFECTIVE [None]
  - EATING DISORDER [None]
  - EMOTIONAL DISTRESS [None]
  - FAILURE TO THRIVE [None]
  - INJURY [None]
  - PAIN [None]
  - PNEUMONIA ASPIRATION [None]
  - UPPER RESPIRATORY TRACT INFECTION [None]
  - URINARY TRACT INFECTION [None]
